FAERS Safety Report 23455071 (Version 7)
Quarter: 2024Q1

REPORT INFORMATION
  Report Type: Spontaneous
  Country: JP (occurrence: JP)
  Receive Date: 20240130
  Receipt Date: 20240314
  Transmission Date: 20240409
  Serious: Yes (Death)
  Sender: FDA-Public Use
  Company Number: JP-NBI-BJ202401648

PATIENT
  Age: 40 Year
  Sex: Female

DRUGS (5)
  1. SPEVIGO [Suspect]
     Active Substance: SPESOLIMAB-SBZO
     Indication: Pustular psoriasis
     Route: 042
     Dates: start: 20231130, end: 20231130
  2. SPEVIGO [Suspect]
     Active Substance: SPESOLIMAB-SBZO
     Route: 042
     Dates: start: 20240112, end: 20240112
  3. SPEVIGO [Suspect]
     Active Substance: SPESOLIMAB-SBZO
     Route: 042
     Dates: start: 20240119, end: 20240119
  4. CORTICOSTEROID NOS [Suspect]
     Active Substance: CORTICOSTEROID NOS
     Indication: Pustular psoriasis
     Route: 065
  5. ETRETINATE [Suspect]
     Active Substance: ETRETINATE
     Indication: Pustular psoriasis
     Route: 048

REACTIONS (3)
  - Death [Fatal]
  - Depression [Unknown]
  - Weight decreased [Unknown]

NARRATIVE: CASE EVENT DATE: 20240123
